FAERS Safety Report 9507924 (Version 1)
Quarter: 2013Q1

REPORT INFORMATION
  Report Type: Spontaneous
  Country: US (occurrence: None)
  Receive Date: 20130305
  Receipt Date: 20130305
  Transmission Date: 20140127
  Serious: Yes (Hospitalization)
  Sender: FDA-Public Use
  Company Number: 163-21880-12021568

PATIENT
  Age: 55 Year
  Sex: Female

DRUGS (14)
  1. REVLIMID (LENALIDOMIDE) (25 MILLIGRAM, CAPSULES) [Suspect]
     Indication: PLASMA CELL MYELOMA
     Dosage: 1 IN 1 D
     Route: 048
     Dates: start: 200906, end: 2009
  2. BACTRIM (BACTRIM) [Concomitant]
  3. MULTIVITAMINS (MULTIVITAMINS)(TABLETS) [Concomitant]
  4. CALCIUM WITH VITAMIN D (CALCIUM WITH VITAMIN D) (TABLETS) [Concomitant]
  5. IRON SULFATE (FERROUS SULFATE) [Concomitant]
  6. ASA (ACETYLSALICYLIC ACID) [Concomitant]
  7. SINGULAIR [Concomitant]
  8. ZOFRAN (ONDANSETRON HYDROCHLORIDE) [Concomitant]
  9. MIRALAX [Concomitant]
  10. COMPAZINE (PROCHLORPERAZINE EDISYLATE) [Concomitant]
  11. TYLENOL (PARACETAMOL) [Concomitant]
  12. ALBUTEROL (SALBUTAMOL) [Concomitant]
  13. COLACE (DOCUSATE SODIUM) [Concomitant]
  14. FAMOTIDINE (FAMOTIDINE) [Concomitant]

REACTIONS (2)
  - Pneumonia [None]
  - Thrombocytopenia [None]
